FAERS Safety Report 7996015-7 (Version None)
Quarter: 2011Q4

REPORT INFORMATION
  Report Type: 
  Country: None (occurrence: None)
  Receive Date: 20111216
  Receipt Date: 20111205
  Transmission Date: 20120403
  Serious: Yes (Other)
  Sender: FDA-Public Use
  Company Number: 2011MA017313

PATIENT
  Age: 35 Year
  Sex: Male

DRUGS (6)
  1. CHLORHEXIDINE GLUCONATE [Suspect]
  2. RADIOCONTRAST MEDIA [Suspect]
  3. NYSTATIN + TRIAMCINOLONE ACETONIDE [Suspect]
     Dosage: ED
  4. LIDOCAINE [Suspect]
  5. MARCAINE [Suspect]
  6. SODIUM CHLORIDE [Suspect]

REACTIONS (1)
  - ANAPHYLACTIC REACTION [None]
